FAERS Safety Report 23392096 (Version 1)
Quarter: 2024Q1

REPORT INFORMATION
  Report Type: Spontaneous
  Country: CN (occurrence: CN)
  Receive Date: 20240111
  Receipt Date: 20240111
  Transmission Date: 20240410
  Serious: Yes (Hospitalization)
  Sender: FDA-Public Use
  Company Number: CN-BAYER-2024A004052

PATIENT
  Age: 33 Year
  Sex: Female

DRUGS (3)
  1. YAZ [Suspect]
     Active Substance: DROSPIRENONE\ETHINYL ESTRADIOL
     Indication: Endometrial hyperplasia
     Dosage: 1 DF, QD
     Route: 048
     Dates: start: 20231210, end: 20231215
  2. YAZ [Suspect]
     Active Substance: DROSPIRENONE\ETHINYL ESTRADIOL
     Indication: Endometrial hyperplasia
     Dosage: 1 DF, QD, AFTER A MEAL
     Route: 048
     Dates: start: 202312, end: 202312
  3. FU KE QIAN JIN [Concomitant]
     Indication: Antiinflammatory therapy
     Dosage: 0.8 G, TID
     Route: 048
     Dates: start: 20231205, end: 20231217

REACTIONS (6)
  - Drug-induced liver injury [Recovering/Resolving]
  - Nausea [Recovered/Resolved]
  - Abdominal pain upper [Recovered/Resolved]
  - Abdominal pain upper [Recovering/Resolving]
  - Abnormal withdrawal bleeding [None]
  - Off label use [None]

NARRATIVE: CASE EVENT DATE: 20231201
